FAERS Safety Report 4745777-0 (Version None)
Quarter: 2005Q3

REPORT INFORMATION
  Report Type: 
  Country: None (occurrence: None)
  Receive Date: 20050815
  Receipt Date: 20050815
  Transmission Date: 20060218
  Serious: Yes (Life-Threatening)
  Sender: FDA-Public Use
  Company Number: None

PATIENT
  Age: 65 Year
  Sex: Male
  Weight: 99.7913 kg

DRUGS (2)
  1. WELLBUTRIN XL [Suspect]
     Indication: ANXIETY
     Dosage: 1  QD  ORAL
     Route: 048
     Dates: start: 20050728, end: 20050805
  2. WELLBUTRIN XL [Suspect]
     Indication: DEPRESSION
     Dosage: 1  QD  ORAL
     Route: 048
     Dates: start: 20050728, end: 20050805

REACTIONS (2)
  - HOMICIDAL IDEATION [None]
  - SUICIDAL IDEATION [None]
